FAERS Safety Report 9228802 (Version 1)
Quarter: 2013Q2

REPORT INFORMATION
  Report Type: Spontaneous
  Country: US (occurrence: US)
  Receive Date: 20130412
  Receipt Date: 20130412
  Transmission Date: 20140414
  Serious: Yes (Disabling)
  Sender: FDA-Public Use
  Company Number: US-009507513-1304USA005128

PATIENT
  Sex: Male

DRUGS (1)
  1. ZETIA [Suspect]
     Dosage: 10 MG, UNK, 1 STANDARD PACKAGE OF 30
     Route: 048
     Dates: start: 201211, end: 2013

REACTIONS (1)
  - Rash [Recovered/Resolved]
